FAERS Safety Report 7785793-8 (Version None)
Quarter: 2011Q3

REPORT INFORMATION
  Report Type: 
  Country: None (occurrence: None)
  Receive Date: 20110929
  Receipt Date: 20110916
  Transmission Date: 20111222
  Serious: Yes (Life-Threatening, Hospitalization)
  Sender: FDA-Public Use
  Company Number: FR-KINGPHARMUSA00001-K201101098

PATIENT
  Age: 71 Year
  Sex: Male

DRUGS (8)
  1. DIGOXIN [Concomitant]
     Dosage: UNK
  2. ALTACE [Suspect]
     Dosage: UNK
     Route: 048
  3. MORPHINE SULFATE [Suspect]
     Dosage: UNK
     Dates: end: 20110715
  4. PHENOBARBITAL TAB [Concomitant]
     Dosage: UNK
  5. PREVISCAN [Concomitant]
     Dosage: UNK
  6. ALLOPURINOL [Concomitant]
     Dosage: UNK
  7. MORPHINE SULFATE [Suspect]
     Dosage: UNK
     Dates: end: 20110715
  8. LASIX [Suspect]
     Dosage: UNK
     Route: 048
     Dates: end: 20110715

REACTIONS (10)
  - HYPERKALAEMIA [None]
  - HYPOVOLAEMIA [None]
  - NORMOCHROMIC NORMOCYTIC ANAEMIA [None]
  - HYPOTENSION [None]
  - RENAL FAILURE ACUTE [None]
  - DIARRHOEA [None]
  - DISEASE PRODROMAL STAGE [None]
  - ANURIA [None]
  - LOSS OF CONSCIOUSNESS [None]
  - MALAISE [None]
